FAERS Safety Report 24105513 (Version 2)
Quarter: 2024Q3

REPORT INFORMATION
  Report Type: Spontaneous
  Country: US (occurrence: US)
  Receive Date: 20240717
  Receipt Date: 20240905
  Transmission Date: 20241017
  Serious: No
  Sender: SANOFI AVENTIS
  Company Number: US-SA-SAC20240705000712

PATIENT
  Age: 59 Year
  Sex: Female

DRUGS (3)
  1. DUPIXENT [Suspect]
     Active Substance: DUPILUMAB
     Indication: Eczema
     Dosage: 600 MG, 1X
     Route: 058
     Dates: start: 2024, end: 2024
  2. DUPIXENT [Suspect]
     Active Substance: DUPILUMAB
     Indication: Dermatitis atopic
     Dosage: 300 MG, QOW
     Route: 058
     Dates: start: 2024
  3. DUPIXENT [Suspect]
     Active Substance: DUPILUMAB
     Dosage: 300 MG, QOW
     Route: 058
     Dates: start: 202405

REACTIONS (9)
  - Skin haemorrhage [Recovering/Resolving]
  - Product dose omission issue [Recovering/Resolving]
  - Dry skin [Recovering/Resolving]
  - Skin fissures [Recovering/Resolving]
  - Night sweats [Recovered/Resolved]
  - Injection site rash [Unknown]
  - Pruritus [Unknown]
  - Eye pruritus [Recovering/Resolving]
  - Rash [Unknown]

NARRATIVE: CASE EVENT DATE: 20240101
